FAERS Safety Report 4881462-2 (Version None)
Quarter: 2006Q1

REPORT INFORMATION
  Report Type: 
  Country: None (occurrence: None)
  Receive Date: 20060116
  Receipt Date: 20060112
  Transmission Date: 20060701
  Serious: Yes (Death)
  Sender: FDA-Public Use
  Company Number: BR-BOEHRINGER INGELHEIM PHARMACEUTICALS, INC.-2006-BP-00324BR

PATIENT
  Age: 68 Year
  Sex: Female

DRUGS (4)
  1. SPIRIVA [Suspect]
     Indication: PULMONARY FIBROSIS
     Route: 055
     Dates: start: 20050201
  2. PRELONE [Concomitant]
  3. SERETIDE [Concomitant]
  4. NON-SPECIFIED ANTI-CANCER DRUGS [Concomitant]

REACTIONS (1)
  - RESPIRATORY ARREST [None]
